FAERS Safety Report 20517222 (Version 1)
Quarter: 2022Q1

REPORT INFORMATION
  Report Type: Other
  Country: None (occurrence: US)
  Receive Date: 20220225
  Receipt Date: 20220225
  Transmission Date: 20220423
  Serious: Yes (Hospitalization, Other)
  Sender: FDA-Public Use
  Company Number: US-Changzhou Pharmaceutical Factory-2126212

PATIENT
  Age: 72 Year
  Sex: Female

DRUGS (8)
  1. DOXYCYCLINE HYCLATE [Suspect]
     Active Substance: DOXYCYCLINE HYCLATE
     Indication: Bacterial infection
     Route: 042
  2. SALINE [Concomitant]
     Active Substance: SODIUM CHLORIDE
     Route: 042
  3. DEXAMETHASONE [Concomitant]
     Active Substance: DEXAMETHASONE
     Route: 065
  4. ALBUTEROL [Concomitant]
     Active Substance: ALBUTEROL
     Route: 065
  5. OXYGEN [Concomitant]
     Active Substance: OXYGEN
     Route: 045
  6. ENOXAPARIN SODIUM [Suspect]
     Active Substance: ENOXAPARIN SODIUM
     Route: 065
  7. VANCOMYCIN HYDROCHLORIDE [Concomitant]
     Active Substance: VANCOMYCIN HYDROCHLORIDE
     Route: 065
  8. MEROPENEM [Concomitant]
     Active Substance: MEROPENEM
     Route: 065

REACTIONS (1)
  - Compartment syndrome [Recovered/Resolved]
